FAERS Safety Report 15646440 (Version 8)
Quarter: 2022Q3

REPORT INFORMATION
  Report Type: Report from Study
  Country: US (occurrence: US)
  Receive Date: 20181122
  Receipt Date: 20220720
  Transmission Date: 20221026
  Serious: Yes (Hospitalization)
  Sender: FDA-Public Use
  Company Number: US-AMGEN-USACT2018166693

PATIENT
  Age: 63 Year
  Sex: Male
  Weight: 74.6 kg

DRUGS (17)
  1. CARFILZOMIB [Suspect]
     Active Substance: CARFILZOMIB
     Indication: Plasma cell myeloma
     Dosage: 56 MG/M2,  ON DAYS 1, 2, 8, 9, 15 AND 16
     Route: 042
     Dates: start: 20180305, end: 20180330
  2. CARFILZOMIB [Suspect]
     Active Substance: CARFILZOMIB
     Dosage: 102 MG/M2,  ON DAYS 1, 2, 8, 9, 15 AND 16
     Route: 042
     Dates: start: 20180412, end: 20180525
  3. CARFILZOMIB [Suspect]
     Active Substance: CARFILZOMIB
     Dosage: 104 MG/M2,  ON DAYS 1, 2, 8, 9, 15 AND 16
     Route: 042
     Dates: start: 20180802, end: 20180817
  4. CARFILZOMIB [Suspect]
     Active Substance: CARFILZOMIB
     Dosage: 102 MG/M2,  ON DAYS 1, 2, 8, 9, 15 AND 16
     Route: 042
     Dates: start: 20180830, end: 20180914
  5. CARFILZOMIB [Suspect]
     Active Substance: CARFILZOMIB
     Dosage: 104 MG/M2,  ON DAYS 1, 2, 8, 9, 15 AND 16
     Route: 042
     Dates: start: 20180927, end: 20181004
  6. CARFILZOMIB [Suspect]
     Active Substance: CARFILZOMIB
     Dosage: 56 MG/M2,  ON DAYS 1, 2, 8, 9, 15 AND 16
     Route: 042
     Dates: start: 20181005, end: 20181005
  7. CARFILZOMIB [Suspect]
     Active Substance: CARFILZOMIB
     Dosage: 104 MG/M2,  ON DAYS 1, 2, 8, 9, 15 AND 16
     Route: 042
     Dates: start: 20181011, end: 20181108
  8. CARFILZOMIB [Suspect]
     Active Substance: CARFILZOMIB
     Dosage: 83 MG/M2, ON DAYS 1, 2, 8, 9, 15 AND 16
     Route: 042
     Dates: start: 20181109, end: 20181109
  9. VENETOCLAX [Suspect]
     Active Substance: VENETOCLAX
     Indication: Plasma cell myeloma
     Dosage: 800 MILLIGRAM 1 IN 1 D
     Route: 048
     Dates: start: 20180315, end: 20181109
  10. VENETOCLAX [Suspect]
     Active Substance: VENETOCLAX
     Dosage: 400 MG, 1 IN 1 D
     Route: 048
     Dates: start: 20181117
  11. DEXAMETHASONE [Suspect]
     Active Substance: DEXAMETHASONE
     Indication: Plasma cell myeloma
     Dosage: 20 MG, CYCLE 1-18 ON DAYS 1, 2, 8, 9, 15, 16, 22 AND 23
     Route: 048
     Dates: start: 20180315, end: 20180504
  12. DEXAMETHASONE [Suspect]
     Active Substance: DEXAMETHASONE
     Dosage: 12 MG, CYCLE 1-18 ON DAYS 1, 2, 8, 9, 15, 16, 22 AND 23
     Route: 048
     Dates: start: 20180510, end: 20180824
  13. DEXAMETHASONE [Suspect]
     Active Substance: DEXAMETHASONE
     Dosage: 8 MG, CYCLE 1-18 ON DAYS 1, 2, 8, 9, 15, 16, 22 AND 23
     Route: 048
     Dates: start: 20180830, end: 20180921
  14. DEXAMETHASONE [Suspect]
     Active Substance: DEXAMETHASONE
     Dosage: 4 MG, CYCLE 1-18 ON DAYS 1, 2, 8, 9, 15, 16, 22 AND 23
     Route: 048
     Dates: start: 20180927, end: 20181109
  15. ALLOPURINOL [Concomitant]
     Active Substance: ALLOPURINOL
     Indication: Prophylaxis
     Dosage: 300 MG, 1 IN 1 D
     Route: 048
     Dates: start: 20180315, end: 20180412
  16. AMLODIPINE [Concomitant]
     Active Substance: AMLODIPINE BESYLATE
     Indication: Hypertension
     Dosage: 5 MG, 1 IN 1 D (10 MG AS REQUIRED)
     Route: 048
     Dates: start: 20180420
  17. ATIVAN [Concomitant]
     Active Substance: LORAZEPAM
     Indication: Restlessness
     Dosage: 1 MG, AS REQUIRED
     Route: 048
     Dates: start: 20180420

REACTIONS (2)
  - Cardiac failure acute [Recovered/Resolved]
  - Dyspnoea [Recovered/Resolved]

NARRATIVE: CASE EVENT DATE: 20181111
